FAERS Safety Report 24199384 (Version 2)
Quarter: 2025Q2

REPORT INFORMATION
  Report Type: Report from Study
  Country: US (occurrence: US)
  Receive Date: 20240812
  Receipt Date: 20250516
  Transmission Date: 20250717
  Serious: Yes (Other)
  Sender: BIOGEN
  Company Number: US-BIOGEN-2023BI01225602

PATIENT
  Sex: Female

DRUGS (6)
  1. VUMERITY [Suspect]
     Active Substance: DIROXIMEL FUMARATE
     Indication: Multiple sclerosis
     Dosage: 231MG 1 CAPSULE TWICE A DAY BY MOUTH FOR 7 DAYS
     Route: 050
     Dates: start: 20230831, end: 20230907
  2. VUMERITY [Suspect]
     Active Substance: DIROXIMEL FUMARATE
     Dosage: THEN 2 CAPSULES TWICE A DAY
     Route: 050
     Dates: start: 20230908
  3. VUMERITY [Suspect]
     Active Substance: DIROXIMEL FUMARATE
     Dosage: TITRATION: ONE 231 MG CAPSULE, BY MOUTH, TWICE A DAY FOR 7 DAYS
     Route: 050
     Dates: start: 20230820
  4. VUMERITY [Suspect]
     Active Substance: DIROXIMEL FUMARATE
     Dosage: TITRATION: TWO 231 MG CAPSULES (462 MG), BY MOUTH, TWICE DAILY THEREAFTER
     Route: 050
  5. VUMERITY [Suspect]
     Active Substance: DIROXIMEL FUMARATE
     Route: 050
     Dates: start: 20230929
  6. PREDNISONE [Suspect]
     Active Substance: PREDNISONE
     Indication: Multiple sclerosis relapse
     Route: 050
     Dates: start: 20231002

REACTIONS (15)
  - Pituitary tumour benign [Unknown]
  - Peripheral swelling [Not Recovered/Not Resolved]
  - Pain in extremity [Unknown]
  - Psoriasis [Unknown]
  - Cognitive disorder [Unknown]
  - Malaise [Unknown]
  - Laryngitis [Unknown]
  - Dental caries [Unknown]
  - Proctalgia [Unknown]
  - Gastrointestinal infection [Recovered/Resolved]
  - Multiple sclerosis relapse [Not Recovered/Not Resolved]
  - White blood cell count increased [Unknown]
  - Cortisol increased [Unknown]
  - Gastrointestinal disorder [Unknown]
  - Candida infection [Unknown]

NARRATIVE: CASE EVENT DATE: 20230101
